FAERS Safety Report 9917547 (Version 2)
Quarter: 2014Q1

REPORT INFORMATION
  Report Type: Spontaneous
  Country: US (occurrence: US)
  Receive Date: 20140221
  Receipt Date: 20140325
  Transmission Date: 20141002
  Serious: Yes (Death)
  Sender: FDA-Public Use
  Company Number: US-B.I. PHARMACEUTICALS,INC./RIDGEFIELD-2014-BI-07615BP

PATIENT
  Age: 57 Year
  Sex: Male

DRUGS (7)
  1. SPIRIVA [Suspect]
     Indication: DYSPNOEA
     Dosage: 18 MCG
     Route: 055
  2. SPIRIVA [Suspect]
     Indication: LUNG DISORDER
  3. ASPIRIN [Concomitant]
     Indication: PRODUCT USED FOR UNKNOWN INDICATION
     Route: 048
  4. IBUPROFEN [Concomitant]
     Indication: PRODUCT USED FOR UNKNOWN INDICATION
     Route: 048
  5. ADVAIR DISKUS [Concomitant]
     Indication: ASTHMA
     Dosage: FORMULATION:INHALATION, AEROSOL DOSE: 1 INH BID
     Route: 055
     Dates: start: 201009
  6. VENTOLIN [Concomitant]
     Indication: ASTHMA
     Dosage: FORMULATION:INHALATION, AEROSOL, 4 TO 6 HOUR
     Route: 055
  7. CLARITIN [Concomitant]
     Indication: HYPERSENSITIVITY
     Dosage: 10 MG
     Route: 048

REACTIONS (3)
  - Pneumonia [Fatal]
  - Chronic obstructive pulmonary disease [Fatal]
  - Arteriosclerosis [Fatal]
